FAERS Safety Report 14204442 (Version 1)
Quarter: 2017Q4

REPORT INFORMATION
  Report Type: Spontaneous
  Country: US (occurrence: None)
  Receive Date: 20171118
  Receipt Date: 20171118
  Transmission Date: 20180321
  Serious: Yes (Hospitalization)
  Sender: FDA-Public Use
  Company Number: None

PATIENT
  Age: 55 Year
  Sex: Female
  Weight: 84.5 kg

DRUGS (8)
  1. ALTENOLOL [Concomitant]
  2. OXYCODONE [Concomitant]
     Active Substance: OXYCODONE
  3. IBIUPROFEN [Concomitant]
  4. ONDANSETRON [Concomitant]
     Active Substance: ONDANSETRON
  5. METFORMIN HYDROCHLORIDE. [Suspect]
     Active Substance: METFORMIN HYDROCHLORIDE
     Dates: end: 20171022
  6. TRAMADOL. [Concomitant]
     Active Substance: TRAMADOL
  7. DEXAMETHSONE [Concomitant]
  8. ELIQUIS [Concomitant]
     Active Substance: APIXABAN

REACTIONS (11)
  - Abdominal pain [None]
  - White blood cell count increased [None]
  - Vaginal haemorrhage [None]
  - Lymphadenopathy [None]
  - Ascites [None]
  - Abscess [None]
  - Vertebral foraminal stenosis [None]
  - Haemoglobin decreased [None]
  - Deep vein thrombosis [None]
  - Anal incontinence [None]
  - Fatigue [None]

NARRATIVE: CASE EVENT DATE: 20171024
